FAERS Safety Report 5924316-2 (Version None)
Quarter: 2008Q4

REPORT INFORMATION
  Report Type: 
  Country: None (occurrence: None)
  Receive Date: 20081020
  Receipt Date: 20081008
  Transmission Date: 20090506
  Serious: Yes (Congenital Anomaly, Other)
  Sender: FDA-Public Use
  Company Number: US-PFIZER INC-2008050202

PATIENT
  Sex: Female
  Weight: 2.9 kg

DRUGS (3)
  1. ZOLOFT [Suspect]
     Indication: OBSESSIVE-COMPULSIVE DISORDER
     Route: 064
     Dates: start: 20000101
  2. ZOLOFT [Suspect]
     Indication: STRESS
  3. LEXAPRO [Concomitant]
     Route: 064

REACTIONS (27)
  - ATRIAL SEPTAL DEFECT [None]
  - BRONCHIOLITIS [None]
  - BRONCHOSPASM [None]
  - CAESAREAN SECTION [None]
  - CARDIAC VALVE DISEASE [None]
  - CHOKING [None]
  - COLLAPSE OF LUNG [None]
  - CONGENITAL ANOMALY [None]
  - DRUG EXPOSURE DURING PREGNANCY [None]
  - ECZEMA [None]
  - HYPERBILIRUBINAEMIA NEONATAL [None]
  - JAUNDICE NEONATAL [None]
  - LUNG DISORDER [None]
  - MIDDLE INSOMNIA [None]
  - MYCOPLASMA INFECTION [None]
  - NEONATAL RESPIRATORY DISTRESS SYNDROME [None]
  - PERSISTENT FOETAL CIRCULATION [None]
  - PLASMINOGEN ACTIVATOR INHIBITOR [None]
  - PLATELET COUNT INCREASED [None]
  - PNEUMOTHORAX [None]
  - PREMATURE BABY [None]
  - PREMATURE SEPARATION OF PLACENTA [None]
  - PYREXIA [None]
  - RETCHING [None]
  - VOMITING [None]
  - WHEEZING [None]
  - WHITE BLOOD CELL COUNT INCREASED [None]
